FAERS Safety Report 4831679-8 (Version None)
Quarter: 2005Q4

REPORT INFORMATION
  Report Type: 
  Country: None (occurrence: None)
  Receive Date: 20051118
  Receipt Date: 20040720
  Transmission Date: 20060501
  Serious: Yes (Hospitalization, Other)
  Sender: FDA-Public Use
  Company Number: US-MERCK-0407USA01736

PATIENT
  Age: 47 Year
  Sex: Female
  Weight: 80 kg

DRUGS (8)
  1. VIOXX [Suspect]
     Indication: PERIARTHRITIS
     Route: 048
     Dates: start: 20000101, end: 20000401
  2. HUMULIN U ULTRALENTE [Concomitant]
     Route: 065
  3. HUMALOG [Concomitant]
     Route: 065
  4. PREMARIN [Concomitant]
     Route: 065
  5. PREVACID [Concomitant]
     Route: 065
     Dates: start: 20000301
  6. VITAMINS (UNSPECIFIED) [Concomitant]
     Route: 065
  7. DARVOCET-N 100 [Concomitant]
     Route: 065
  8. TENORMIN [Concomitant]
     Route: 065

REACTIONS (11)
  - ABDOMINAL PAIN [None]
  - ANXIETY [None]
  - CHOLELITHIASIS [None]
  - CHRONIC OBSTRUCTIVE PULMONARY DISEASE [None]
  - EMOTIONAL DISTRESS [None]
  - GASTROOESOPHAGEAL REFLUX DISEASE [None]
  - GROIN PAIN [None]
  - HYPERCHOLESTEROLAEMIA [None]
  - MYOCARDIAL INFARCTION [None]
  - STENT OCCLUSION [None]
  - URINARY TRACT INFECTION [None]
